FAERS Safety Report 4760966-7 (Version None)
Quarter: 2005Q3

REPORT INFORMATION
  Report Type: 
  Country: None (occurrence: None)
  Receive Date: 20050901
  Receipt Date: 20050819
  Transmission Date: 20060218
  Serious: Yes (Hospitalization)
  Sender: FDA-Public Use
  Company Number: 196628

PATIENT
  Age: 33 Year
  Sex: Female
  Weight: 77.1115 kg

DRUGS (4)
  1. AVONEX [Suspect]
     Indication: MULTIPLE SCLEROSIS
     Dosage: 30 UG QW IM
     Route: 030
     Dates: start: 20020101, end: 20031201
  2. AVONEX [Suspect]
     Indication: MULTIPLE SCLEROSIS
     Dosage: 30 UG QW IM
     Route: 030
     Dates: start: 20040101, end: 20040404
  3. PREMARIN [Concomitant]
  4. ADVAIR DISKUS 100/50 [Concomitant]

REACTIONS (13)
  - AMNESIA [None]
  - ANXIETY [None]
  - BACK PAIN [None]
  - CONDITION AGGRAVATED [None]
  - DEPRESSION [None]
  - ECONOMIC PROBLEM [None]
  - FALL [None]
  - HEADACHE [None]
  - MULTIPLE SCLEROSIS [None]
  - PAIN IN EXTREMITY [None]
  - PARALYSIS [None]
  - SENSORY LOSS [None]
  - URINARY INCONTINENCE [None]
